FAERS Safety Report 17997814 (Version 1)
Quarter: 2020Q3

REPORT INFORMATION
  Report Type: Report from Study
  Country: KR (occurrence: KR)
  Receive Date: 20200709
  Receipt Date: 20200709
  Transmission Date: 20201103
  Serious: Yes (Hospitalization)
  Sender: FDA-Public Use
  Company Number: KR-AMGEN-KORNI2020109356

PATIENT
  Age: 48 Year
  Sex: Female

DRUGS (13)
  1. PEGFILGRASTIM [Suspect]
     Active Substance: PEGFILGRASTIM
     Indication: PRODUCT USED FOR UNKNOWN INDICATION
     Dosage: 6 MG * 1
     Route: 058
     Dates: start: 20191114, end: 20191114
  2. DOXORUBICIN [Concomitant]
     Active Substance: DOXORUBICIN
     Dosage: 109.2 MG
     Dates: start: 20190821, end: 20190821
  3. DOCETAXEL. [Concomitant]
     Active Substance: DOCETAXEL
     Indication: BREAST CANCER
     Dosage: 181 MG
     Dates: start: 20191023, end: 20191023
  4. PEGFILGRASTIM [Suspect]
     Active Substance: PEGFILGRASTIM
     Dosage: 6 MG * 1
     Route: 058
     Dates: start: 20191205, end: 20191205
  5. CYCLOPHOSPHAMIDE. [Concomitant]
     Active Substance: CYCLOPHOSPHAMIDE
     Dosage: 1092 MG
     Dates: start: 20191002, end: 20191002
  6. DOCETAXEL. [Concomitant]
     Active Substance: DOCETAXEL
     Dosage: 179 MG
     Dates: start: 20191113, end: 20191113
  7. DOXORUBICIN [Concomitant]
     Active Substance: DOXORUBICIN
     Indication: BREAST CANCER
     Dosage: 109.2 MG
     Dates: start: 20190731, end: 20190731
  8. CYCLOPHOSPHAMIDE. [Concomitant]
     Active Substance: CYCLOPHOSPHAMIDE
     Indication: BREAST CANCER
     Dosage: 1092 MG
     Dates: start: 20190731, end: 20190731
  9. DOXORUBICIN [Concomitant]
     Active Substance: DOXORUBICIN
     Dosage: 109.2 MG
     Dates: start: 20191002, end: 20191002
  10. DOCETAXEL. [Concomitant]
     Active Substance: DOCETAXEL
     Dosage: 179 MG
     Dates: start: 20191204, end: 20191204
  11. DOXORUBICIN [Concomitant]
     Active Substance: DOXORUBICIN
     Dosage: 109.2 MG
     Dates: start: 20190911, end: 20190911
  12. CYCLOPHOSPHAMIDE. [Concomitant]
     Active Substance: CYCLOPHOSPHAMIDE
     Dosage: 1092 MG
     Dates: start: 20190821, end: 20190821
  13. CYCLOPHOSPHAMIDE. [Concomitant]
     Active Substance: CYCLOPHOSPHAMIDE
     Dosage: 1092 MG
     Dates: start: 20190911, end: 20190911

REACTIONS (1)
  - Pyrexia [Recovered/Resolved]

NARRATIVE: CASE EVENT DATE: 20191207
